FAERS Safety Report 8169462-0 (Version None)
Quarter: 2012Q1

REPORT INFORMATION
  Report Type: 
  Country: None (occurrence: None)
  Receive Date: 20120222
  Receipt Date: 20120116
  Transmission Date: 20120608
  Serious: Yes (Other)
  Sender: FDA-Public Use
  Company Number: FK201200171

PATIENT
  Age: 51 Year
  Sex: Male

DRUGS (5)
  1. METFORMIN HCL [Concomitant]
  2. REGULAR HUMAN INSULIN (INSULIN HUMAN) (INSULIN HUMAN) [Concomitant]
  3. LIDOCAINE [Suspect]
     Indication: URETHRAL STENOSIS
     Dosage: 6.7MG/KG
  4. RISPERIDONE [Concomitant]
  5. DEXTROMETHORPHAN (DEXTROMETHORPHAN) [Concomitant]

REACTIONS (5)
  - VOMITING [None]
  - NAUSEA [None]
  - BLINDNESS [None]
  - DIZZINESS [None]
  - SPEECH DISORDER [None]
